FAERS Safety Report 8430338-2 (Version None)
Quarter: 2012Q2

REPORT INFORMATION
  Report Type: 
  Country: None (occurrence: None)
  Receive Date: 20120612
  Receipt Date: 20120608
  Transmission Date: 20120825
  Serious: Yes (Death)
  Sender: FDA-Public Use
  Company Number: JP-B.I. PHARMACEUTICALS,INC./RIDGEFIELD-2012-BP-13174NB

PATIENT
  Age: 63 Year
  Sex: Male

DRUGS (2)
  1. ASPIRIN [Suspect]
     Dosage: 100 MG
     Route: 048
  2. PRADAXA [Suspect]
     Indication: ATRIAL FIBRILLATION
     Dosage: 220 MG
     Route: 048

REACTIONS (3)
  - MULTI-ORGAN FAILURE [None]
  - HAEMORRHAGE [None]
  - AORTIC DISSECTION [None]
